FAERS Safety Report 10420493 (Version 1)
Quarter: 2014Q2

REPORT INFORMATION
  Report Type: Spontaneous
  Country: US (occurrence: None)
  Receive Date: 20140626
  Receipt Date: 20140626
  Transmission Date: 20141212
  Serious: Yes (Death)
  Sender: FDA-Public Use
  Company Number: 2014020121

PATIENT
  Age: 35 Year
  Sex: Female

DRUGS (3)
  1. MEPROBAMATE (MEPROBAMATE) [Suspect]
  2. HEROIN (HEROIN) [Suspect]
  3. ETHANOL (ETHANOL) [Suspect]

REACTIONS (1)
  - Drug abuse [None]
